FAERS Safety Report 13524827 (Version 1)
Quarter: 2017Q2

REPORT INFORMATION
  Report Type: Spontaneous
  Country: US (occurrence: US)
  Receive Date: 20170508
  Receipt Date: 20170508
  Transmission Date: 20170830
  Serious: Yes (Other)
  Sender: FDA-Public Use
  Company Number: US-ROCHE-1096137

PATIENT
  Sex: Male

DRUGS (3)
  1. TEMODAR [Concomitant]
     Active Substance: TEMOZOLOMIDE
  2. AVASTIN [Suspect]
     Active Substance: BEVACIZUMAB
     Indication: BRAIN NEOPLASM MALIGNANT
     Route: 065
     Dates: start: 20060126
  3. DECADRON [Concomitant]
     Active Substance: DEXAMETHASONE

REACTIONS (2)
  - Deep vein thrombosis [Unknown]
  - Tumour haemorrhage [Unknown]
